FAERS Safety Report 25786002 (Version 1)
Quarter: 2025Q3

REPORT INFORMATION
  Report Type: Spontaneous
  Country: US (occurrence: US)
  Receive Date: 20250910
  Receipt Date: 20250910
  Transmission Date: 20251020
  Serious: Yes (Other)
  Sender: MALLINCKRODT
  Company Number: US-MALLINCKRODT-MNK202505528

PATIENT
  Age: 60 Year
  Sex: Female

DRUGS (7)
  1. NITRIC OXIDE [Suspect]
     Active Substance: NITRIC OXIDE
     Indication: Pulmonary arterial hypertension
     Route: 055
  2. TADALAFIL [Concomitant]
     Active Substance: TADALAFIL
  3. MACITENTAN [Concomitant]
     Active Substance: MACITENTAN
  4. TREPROSTINIL [Concomitant]
     Active Substance: TREPROSTINIL
  5. EPOPROSTENOL [Concomitant]
     Active Substance: EPOPROSTENOL
  6. DOBUTAMINE [Concomitant]
     Active Substance: DOBUTAMINE HYDROCHLORIDE
  7. SILDENAFIL [Concomitant]
     Active Substance: SILDENAFIL

REACTIONS (5)
  - Hypoxia [Unknown]
  - Thrombocytopenia [Unknown]
  - Anaemia [Unknown]
  - Coagulopathy [Unknown]
  - Product use issue [Unknown]
